FAERS Safety Report 6698292-1 (Version None)
Quarter: 2010Q2

REPORT INFORMATION
  Report Type: 
  Country: None (occurrence: None)
  Receive Date: 20100427
  Receipt Date: 20100421
  Transmission Date: 20101027
  Serious: Yes (Death, Other)
  Sender: FDA-Public Use
  Company Number: IT-BAYER-201022959GPV

PATIENT

DRUGS (7)
  1. CAMPATH [Suspect]
     Indication: IMMUNOSUPPRESSION
     Dosage: TOTAL DAILY DOSE: 0.3 MG/KG
  2. CAMPATH [Suspect]
     Dosage: TOTAL DAILY DOSE: 0.3 MG/KG
  3. PROGRAF [Suspect]
     Indication: IMMUNOSUPPRESSION
     Dosage: TOTAL DAILY DOSE: 0.15 MG/KG
     Route: 042
  4. PROGRAF [Suspect]
     Dosage: TOTAL DAILY DOSE: 0.15 MG/KG
     Route: 048
  5. GANCICLOVIR [Concomitant]
     Indication: ANTIVIRAL PROPHYLAXIS
     Dosage: TOTAL DAILY DOSE: 10 MG/KG
     Route: 042
  6. ANTI-CYTOMEGALOVIRUS IMMUNOGLOBULIN [Concomitant]
     Indication: ANTIVIRAL PROPHYLAXIS
     Dosage: TOTAL DAILY DOSE: 3500 U
  7. VALGANCICLOVIR HCL [Concomitant]
     Indication: ANTIVIRAL PROPHYLAXIS
     Route: 048

REACTIONS (8)
  - CYTOMEGALOVIRUS ENTERITIS [None]
  - CYTOMEGALOVIRUS GASTROENTERITIS [None]
  - CYTOMEGALOVIRUS INFECTION [None]
  - INTESTINE TRANSPLANT REJECTION [None]
  - PYREXIA [None]
  - SEPSIS [None]
  - TRANSPLANT REJECTION [None]
  - VOMITING [None]
